FAERS Safety Report 19841590 (Version 1)
Quarter: 2021Q3

REPORT INFORMATION
  Report Type: Spontaneous
  Country: IN (occurrence: IN)
  Receive Date: 20210916
  Receipt Date: 20210916
  Transmission Date: 20211014
  Serious: Yes (Death)
  Sender: FDA-Public Use
  Company Number: IN-PFIZER INC-2021388452

PATIENT
  Age: 46 Year
  Sex: Female

DRUGS (2)
  1. INONZA [Suspect]
     Active Substance: INOTUZUMAB OZOGAMICIN
     Dosage: 1 MG, 1X/DAY
     Route: 042
     Dates: start: 20210322
  2. INONZA [Suspect]
     Active Substance: INOTUZUMAB OZOGAMICIN
     Dosage: 1 MG, 1X/DAY
     Route: 042
     Dates: start: 20210405, end: 20210903

REACTIONS (1)
  - Death [Fatal]
